FAERS Safety Report 24814501 (Version 1)
Quarter: 2025Q1

REPORT INFORMATION
  Report Type: Spontaneous
  Country: MY (occurrence: MY)
  Receive Date: 20250107
  Receipt Date: 20250107
  Transmission Date: 20250409
  Serious: Yes (Hospitalization, Other)
  Sender: ASTELLAS
  Company Number: MY-ASTELLAS-2024-AER-028322

PATIENT
  Age: 56 Year
  Sex: Male

DRUGS (5)
  1. TACROLIMUS [Suspect]
     Active Substance: TACROLIMUS
     Indication: Prophylaxis against transplant rejection
     Route: 065
     Dates: start: 202003, end: 2021
  2. PREDNISOLONE [Concomitant]
     Active Substance: PREDNISOLONE
     Indication: Allogenic stem cell transplantation
     Route: 065
  3. PREDNISOLONE [Concomitant]
     Active Substance: PREDNISOLONE
     Route: 065
  4. PREDNISOLONE [Concomitant]
     Active Substance: PREDNISOLONE
     Route: 065
     Dates: start: 202003
  5. COVID-19 (mRNA-based) vaccine [Concomitant]
     Indication: COVID-19
     Route: 065
     Dates: start: 20210602

REACTIONS (1)
  - Acute disseminated encephalomyelitis [Recovered/Resolved]

NARRATIVE: CASE EVENT DATE: 20210604
